FAERS Safety Report 11336410 (Version 2)
Quarter: 2015Q4

REPORT INFORMATION
  Report Type: Other
  Country: JP (occurrence: JP)
  Receive Date: 20150804
  Receipt Date: 20151022
  Transmission Date: 20160304
  Serious: Yes (Other)
  Sender: FDA-Public Use
  Company Number: JP-GUERBET LLC-1040914

PATIENT
  Age: 61 Year
  Sex: Male

DRUGS (2)
  1. LIPIODOL [Suspect]
     Active Substance: ETHIODIZED OIL
     Indication: SCLEROTHERAPY
     Route: 042
     Dates: start: 20140701, end: 20140701
  2. HISTOACRYL [Concomitant]
     Active Substance: ENBUCRILATE

REACTIONS (3)
  - Pancreatic pseudocyst [Recovered/Resolved]
  - Embolism arterial [Recovered/Resolved]
  - Pancreatitis [Recovered/Resolved]

NARRATIVE: CASE EVENT DATE: 20140701
